FAERS Safety Report 6911816-1 (Version None)
Quarter: 2010Q3

REPORT INFORMATION
  Report Type: 
  Country: None (occurrence: None)
  Receive Date: 20100806
  Receipt Date: 20070717
  Transmission Date: 20110219
  Serious: No
  Sender: FDA-Public Use
  Company Number: US-PFIZER INC-2007048299

PATIENT
  Sex: Male
  Weight: 84.09 kg

DRUGS (3)
  1. DETROL LA [Suspect]
     Indication: POLLAKIURIA
     Dates: start: 20070401
  2. METOCLOPRAMIDE [Concomitant]
  3. VIAGRA [Concomitant]

REACTIONS (2)
  - DRUG INEFFECTIVE [None]
  - PENILE SIZE REDUCED [None]
